FAERS Safety Report 10168698 (Version 1)
Quarter: 2014Q2

REPORT INFORMATION
  Report Type: Report from Study
  Country: AU (occurrence: None)
  Receive Date: 20140509
  Receipt Date: 20140509
  Transmission Date: 20141212
  Serious: Yes (Other)
  Sender: FDA-Public Use
  Company Number: 2014-19486

PATIENT
  Age: 67 Year
  Sex: Male

DRUGS (1)
  1. EYLEA [Suspect]
     Indication: AGE-RELATED MACULAR DEGENERATION
     Dosage: IN THE RIGHT EYE EVERY 6 WEEKS
     Route: 031
     Dates: start: 20131220

REACTIONS (4)
  - Retinal oedema [None]
  - Vision blurred [None]
  - Visual impairment [None]
  - Inappropriate schedule of drug administration [None]
